FAERS Safety Report 9255751 (Version 1)
Quarter: 2013Q2

REPORT INFORMATION
  Report Type: Spontaneous
  Country: US (occurrence: US)
  Receive Date: 20130425
  Receipt Date: 20130425
  Transmission Date: 20140414
  Serious: No
  Sender: FDA-Public Use
  Company Number: US-TEVA-400672USA

PATIENT
  Sex: Female

DRUGS (2)
  1. NUVIGIL [Suspect]
     Indication: SOMNOLENCE
     Dosage: 1/2 OF 250 MG TABLET (DOSE OF 125 MG)
     Dates: start: 20130422
  2. ARIMIDEX [Concomitant]

REACTIONS (3)
  - Psychomotor hyperactivity [Unknown]
  - Logorrhoea [Unknown]
  - Initial insomnia [Unknown]
